FAERS Safety Report 12958465 (Version 2)
Quarter: 2016Q4

REPORT INFORMATION
  Report Type: Report from Study
  Country: GB (occurrence: GB)
  Receive Date: 20161121
  Receipt Date: 20161226
  Transmission Date: 20170207
  Serious: Yes (Other)
  Sender: FDA-Public Use
  Company Number: GB-ROCHE-1853644

PATIENT

DRUGS (1)
  1. BEVACIZUMAB [Suspect]
     Active Substance: BEVACIZUMAB
     Indication: NEUROFIBROMATOSIS
     Route: 042

REACTIONS (36)
  - Fatigue [Unknown]
  - Cardiac failure [Unknown]
  - Mucosal inflammation [Unknown]
  - Arthralgia [Unknown]
  - Dizziness [Unknown]
  - Hypertension [Unknown]
  - Impaired healing [Unknown]
  - Thrombocytopenia [Unknown]
  - Anaemia [Unknown]
  - Menstruation irregular [Unknown]
  - Seizure [Unknown]
  - Urinary tract infection [Unknown]
  - Ulcer [Unknown]
  - Vomiting [Unknown]
  - Haemoglobin increased [Unknown]
  - Infection [Unknown]
  - Nausea [Unknown]
  - Constipation [Unknown]
  - Diarrhoea [Unknown]
  - Periodontal disease [Unknown]
  - Rectal haemorrhage [Unknown]
  - Renal impairment [Unknown]
  - Palpitations [Unknown]
  - Menorrhagia [Unknown]
  - Rash [Unknown]
  - Hepatobiliary disease [Unknown]
  - Hyperkalaemia [Unknown]
  - Headache [Unknown]
  - Haematuria [Unknown]
  - Epistaxis [Unknown]
  - Blood creatinine increased [Unknown]
  - Depression [Unknown]
  - Psychotic disorder [Unknown]
  - Proteinuria [Unknown]
  - Alanine aminotransferase increased [Unknown]
  - Pain [Unknown]
